FAERS Safety Report 6445233-8 (Version None)
Quarter: 2009Q4

REPORT INFORMATION
  Report Type: 
  Country: None (occurrence: None)
  Receive Date: 20091118
  Receipt Date: 20091117
  Transmission Date: 20100525
  Serious: No
  Sender: FDA-Public Use
  Company Number: US-B.I. PHARMACEUTICALS,INC./RIDGEFIELD-2009-BP-13115BP

PATIENT
  Sex: Female

DRUGS (3)
  1. SPIRIVA [Suspect]
     Indication: EMPHYSEMA
     Dosage: 18 MCG
     Route: 055
     Dates: start: 20050101
  2. PERFOROMIST [Concomitant]
     Indication: EMPHYSEMA
  3. ADVAIR DISKUS 100/50 [Concomitant]
     Indication: EMPHYSEMA

REACTIONS (1)
  - DRUG INEFFECTIVE [None]
